FAERS Safety Report 15944689 (Version 1)
Quarter: 2019Q1

REPORT INFORMATION
  Report Type: Spontaneous
  Country: US (occurrence: US)
  Receive Date: 20190211
  Receipt Date: 20190211
  Transmission Date: 20190417
  Serious: Yes (Other)
  Sender: FDA-Public Use
  Company Number: US-BAYER-2019-028785

PATIENT
  Age: 43 Year
  Sex: Female

DRUGS (1)
  1. CIPRO [Suspect]
     Active Substance: CIPROFLOXACIN HYDROCHLORIDE
     Indication: BACTERIAL INFECTION
     Dosage: UNK
     Dates: start: 20181122, end: 20181123

REACTIONS (16)
  - Tinnitus [Recovered/Resolved]
  - Fatigue [Not Recovered/Not Resolved]
  - Skin laceration [Not Recovered/Not Resolved]
  - Osteoarthritis [Not Recovered/Not Resolved]
  - Erythema [Not Recovered/Not Resolved]
  - Ageusia [Recovering/Resolving]
  - Tremor [Recovering/Resolving]
  - Arthralgia [Not Recovered/Not Resolved]
  - Bone disorder [Not Recovered/Not Resolved]
  - Abdominal pain [Recovering/Resolving]
  - Limb discomfort [Not Recovered/Not Resolved]
  - Hypoaesthesia [Recovering/Resolving]
  - Paraesthesia [Recovering/Resolving]
  - Joint injury [Not Recovered/Not Resolved]
  - Confusional state [Recovering/Resolving]
  - Migraine [Recovering/Resolving]

NARRATIVE: CASE EVENT DATE: 20181122
